FAERS Safety Report 18274887 (Version 3)
Quarter: 2020Q4

REPORT INFORMATION
  Report Type: Other
  Country: ES (occurrence: ES)
  Receive Date: 20200917
  Receipt Date: 20201116
  Transmission Date: 20210113
  Serious: Yes (Other)
  Sender: FDA-Public Use
  Company Number: ES-ROCHE-2677923

PATIENT
  Age: 44 Year
  Sex: Female

DRUGS (4)
  1. PACLITAXEL. [Suspect]
     Active Substance: PACLITAXEL
     Indication: HER2 POSITIVE BREAST CANCER
     Dosage: FOUR CYCLES
     Route: 065
     Dates: start: 201812, end: 201904
  2. TAMOXIFEN [Concomitant]
     Active Substance: TAMOXIFEN
     Indication: HER2 POSITIVE BREAST CANCER
  3. PERTUZUMAB. [Suspect]
     Active Substance: PERTUZUMAB
     Indication: HER2 POSITIVE BREAST CANCER
     Dosage: FOUR CYCLES
     Route: 065
     Dates: start: 201812, end: 201904
  4. TRASTUZUMAB. [Suspect]
     Active Substance: TRASTUZUMAB
     Indication: HER2 POSITIVE BREAST CANCER
     Dosage: CONTINUED FOR 18 CYCLES
     Route: 065
     Dates: start: 201812

REACTIONS (4)
  - Intentional product use issue [Unknown]
  - Neuropathy peripheral [Unknown]
  - Secondary cerebellar degeneration [Recovering/Resolving]
  - Off label use [Unknown]

NARRATIVE: CASE EVENT DATE: 201901
